FAERS Safety Report 22359254 (Version 1)
Quarter: 2023Q2

REPORT INFORMATION
  Report Type: Spontaneous
  Country: US (occurrence: US)
  Receive Date: 20230524
  Receipt Date: 20230524
  Transmission Date: 20230722
  Serious: No
  Sender: FDA-Public Use
  Company Number: US-VANDA PHARMACEUTICALS, INC-2021ILOUS001866

PATIENT
  Age: 15 Year
  Sex: Male
  Weight: 74.83 kg

DRUGS (2)
  1. FANAPT [Suspect]
     Active Substance: ILOPERIDONE
     Indication: Autism spectrum disorder
     Dosage: 6 MILLIGRAM, QD
     Route: 048
     Dates: start: 20210929, end: 20211011
  2. FANAPT [Suspect]
     Active Substance: ILOPERIDONE
     Dosage: 3 MILLIGRAM, BID
     Route: 048
     Dates: start: 20211025

REACTIONS (3)
  - Vomiting [Not Recovered/Not Resolved]
  - Product administered to patient of inappropriate age [Unknown]
  - Off label use [Unknown]

NARRATIVE: CASE EVENT DATE: 20210929
